FAERS Safety Report 18411733 (Version 1)
Quarter: 2020Q4

REPORT INFORMATION
  Report Type: Spontaneous
  Country: FR (occurrence: FR)
  Receive Date: 20201021
  Receipt Date: 20201021
  Transmission Date: 20210114
  Serious: Yes (Life-Threatening, Other)
  Sender: FDA-Public Use
  Company Number: PHHY2018FR052566

PATIENT

DRUGS (3)
  1. CYCLOPHOSPHAMIDE. [Suspect]
     Active Substance: CYCLOPHOSPHAMIDE
     Indication: WALDENSTROM^S MACROGLOBULINAEMIA
     Dosage: 250 MG/M2  (ON DAY DAY 3, EVERY 4 WEEKS)
     Route: 048
  2. RITUXIMAB. [Suspect]
     Active Substance: RITUXIMAB
     Indication: WALDENSTROM^S MACROGLOBULINAEMIA
     Dosage: 375 MG/M2 ON DAY 1 (EVERY 4 WEEKS)
     Route: 042
  3. FLUDARABINE PHOSPHATE. [Suspect]
     Active Substance: FLUDARABINE PHOSPHATE
     Indication: WALDENSTROM^S MACROGLOBULINAEMIA
     Dosage: 40 MG/M2 (ON DAY 1 DAY 3, EVERY 4 WEEKS)
     Route: 048

REACTIONS (14)
  - Drug intolerance [Unknown]
  - Disseminated tuberculosis [Unknown]
  - BK virus infection [Unknown]
  - Haemophagocytic lymphohistiocytosis [Unknown]
  - Septic shock [Unknown]
  - Tuberculosis [Unknown]
  - Sepsis [Unknown]
  - Escherichia infection [Unknown]
  - Pyelonephritis [Unknown]
  - Adenovirus reactivation [Unknown]
  - Cytomegalovirus infection [Unknown]
  - Cystitis [Unknown]
  - Adenovirus infection [Unknown]
  - Histoplasmosis [Unknown]
